FAERS Safety Report 9693514 (Version 3)
Quarter: 2013Q4

REPORT INFORMATION
  Report Type: Spontaneous
  Country: JP (occurrence: JP)
  Receive Date: 20131118
  Receipt Date: 20131220
  Transmission Date: 20140711
  Serious: Yes (Other)
  Sender: FDA-Public Use
  Company Number: JP-BRISTOL-MYERS SQUIBB COMPANY-19820380

PATIENT
  Age: 72 Year
  Sex: Male

DRUGS (4)
  1. METGLUCO [Suspect]
     Indication: DIABETES MELLITUS
     Dosage: DRUG INCREASED TO 1000MG/DAY
     Route: 048
     Dates: start: 20130821, end: 20130930
  2. CO-DIOVAN [Concomitant]
     Indication: HYPERTENSION
     Route: 048
     Dates: start: 20120107
  3. SITAGLIPTIN PHOSPHATE [Concomitant]
     Indication: DIABETES MELLITUS
     Route: 048
     Dates: start: 20111219
  4. REBAMIPIDE [Concomitant]

REACTIONS (1)
  - Hyperuricaemia [Recovering/Resolving]
